FAERS Safety Report 17950440 (Version 1)
Quarter: 2020Q2

REPORT INFORMATION
  Report Type: Spontaneous
  Country: CN (occurrence: CN)
  Receive Date: 20200626
  Receipt Date: 20200626
  Transmission Date: 20200714
  Serious: Yes (Death, Other)
  Sender: FDA-Public Use
  Company Number: CN-009507513-2006CHN008633

PATIENT
  Age: 70 Year
  Sex: Male

DRUGS (2)
  1. AFATINIB [Concomitant]
     Active Substance: AFATINIB
     Dosage: UNK
     Dates: start: 20200408
  2. PEMBROLIZUMAB. [Suspect]
     Active Substance: PEMBROLIZUMAB
     Dosage: UNK
     Dates: start: 20200416

REACTIONS (12)
  - Hypotension [Unknown]
  - Blood potassium decreased [Recovered/Resolved]
  - Somnolence [Unknown]
  - Atrial flutter [Unknown]
  - Death [Fatal]
  - Atrial fibrillation [Unknown]
  - Atrial fibrillation [Recovered/Resolved]
  - Respiratory failure [Unknown]
  - Blood pressure abnormal [Unknown]
  - Atrial fibrillation [Unknown]
  - Condition aggravated [Unknown]
  - Sinus tachycardia [Unknown]

NARRATIVE: CASE EVENT DATE: 20200421
